FAERS Safety Report 14383239 (Version 2)
Quarter: 2021Q2

REPORT INFORMATION
  Report Type: Spontaneous
  Country: FR (occurrence: FR)
  Receive Date: 20180115
  Receipt Date: 20210426
  Transmission Date: 20210716
  Serious: Yes (Other)
  Sender: FDA-Public Use
  Company Number: FR-TEVA-2018-FR-843416

PATIENT
  Age: 86 Year
  Sex: Male
  Weight: 98 kg

DRUGS (17)
  1. EUPANTOL [Concomitant]
     Active Substance: PANTOPRAZOLE SODIUM
  2. LANTUS [Concomitant]
     Active Substance: INSULIN GLARGINE
  3. VANCOMYCIN [Suspect]
     Active Substance: VANCOMYCIN
     Indication: UROSEPSIS
     Dates: start: 201710, end: 201710
  4. CLINDAMYCINE BASE [Suspect]
     Active Substance: CLINDAMYCIN HYDROCHLORIDE
     Indication: ERYSIPELAS
     Dates: start: 201710, end: 201710
  5. PERINDOPRIL [Concomitant]
     Active Substance: PERINDOPRIL
  6. APIDRA [Concomitant]
     Active Substance: INSULIN GLULISINE
  7. DULOXETINE BASE [Suspect]
     Active Substance: DULOXETINE
     Route: 048
     Dates: start: 20171110
  8. FORTUM [Suspect]
     Active Substance: CEFTAZIDIME
     Indication: UROSEPSIS
     Dates: start: 201710, end: 20171113
  9. AUGMENTIN [Suspect]
     Active Substance: AMOXICILLIN\CLAVULANATE POTASSIUM
     Indication: ERYSIPELAS
     Route: 042
     Dates: start: 20171012, end: 20171016
  10. COUMADINE [Concomitant]
     Active Substance: WARFARIN SODIUM
  11. LYRICA [Concomitant]
     Active Substance: PREGABALIN
  12. ZOPICLONE [Concomitant]
     Active Substance: ZOPICLONE
  13. LAMALINE (ATROPA BELLADONNA EXTRACT\CAFFEINE\PAPAVER SOMNIFERUM TINCTURE\PARACETAMOL) [Suspect]
     Active Substance: ACETAMINOPHEN\BELLADONNA LEAF\CAFFEINE\OPIUM
     Route: 048
     Dates: start: 20170904, end: 20170908
  14. ORAMORPH [Concomitant]
     Active Substance: MORPHINE SULFATE
  15. DAFALGAN [Suspect]
     Active Substance: ACETAMINOPHEN
     Route: 048
     Dates: start: 20170908
  16. ACIDE FOLIQUE [Suspect]
     Active Substance: FOLIC ACID
     Route: 048
     Dates: start: 201710
  17. MOVICOL [Concomitant]
     Active Substance: POLYETHYLENE GLYCOL 3350\POTASSIUM CHLORIDE\SODIUM BICARBONATE\SODIUM CHLORIDE

REACTIONS (1)
  - Thrombocytopenia [Recovering/Resolving]

NARRATIVE: CASE EVENT DATE: 20170921
